FAERS Safety Report 14962827 (Version 3)
Quarter: 2018Q3

REPORT INFORMATION
  Report Type: Report from Study
  Country: None (occurrence: SI)
  Receive Date: 20180601
  Receipt Date: 20180810
  Transmission Date: 20181010
  Serious: Yes (Hospitalization, Disabling, Other)
  Sender: FDA-Public Use
  Company Number: SI-ABBVIE-18P-261-2373408-00

PATIENT
  Age: 74 Year
  Sex: Female

DRUGS (13)
  1. LACTECON SYRUP [Concomitant]
     Indication: CONSTIPATION
     Route: 048
     Dates: start: 201703
  2. PLIVIT D3 [Concomitant]
     Active Substance: CHOLECALCIFEROL
     Indication: OSTEOPOROSIS
     Route: 048
     Dates: start: 2017
  3. NEUPRO [Concomitant]
     Active Substance: ROTIGOTINE
     Indication: PARKINSON^S DISEASE
     Route: 062
     Dates: start: 2015, end: 20180531
  4. PANTOPRAZOL [Concomitant]
     Active Substance: PANTOPRAZOLE SODIUM
     Indication: GASTROSTOMY
     Route: 048
     Dates: start: 201703
  5. MADOPAR [Concomitant]
     Active Substance: BENSERAZIDE HYDROCHLORIDE\LEVODOPA
     Indication: PARKINSON^S DISEASE
     Dosage: DOSE: 150/50MG?FREQUENCY: ANTE MERIDIEM
     Route: 048
     Dates: start: 201703
  6. STELEVO [Concomitant]
     Indication: PARKINSON^S DISEASE
     Dosage: FREQUENCY: 2 X OMNE NOCTE
     Route: 048
     Dates: start: 201703
  7. NIMVASTID [Concomitant]
     Indication: COGNITIVE DISORDER
     Route: 048
     Dates: start: 2016
  8. DUODOPA [Suspect]
     Active Substance: CARBIDOPA\LEVODOPA
     Indication: PARKINSON^S DISEASE
     Dosage: TITRATION WITH NJ: MD: 11 ML. CD: 3.5 ML/H, ED: 3 ML, 3X/D
     Route: 050
     Dates: start: 20170327, end: 20170329
  9. PRADAXA [Concomitant]
     Active Substance: DABIGATRAN ETEXILATE MESYLATE
     Indication: ATRIAL FIBRILLATION
     Route: 048
     Dates: start: 2016
  10. MIRZATEN [Concomitant]
     Active Substance: MIRTAZAPINE
     Indication: PARKINSON^S DISEASE
     Dosage: AT BEDTIME
     Route: 048
     Dates: start: 201703
  11. STALEVO [Concomitant]
     Active Substance: CARBIDOPA\ENTACAPONE\LEVODOPA
     Indication: PARKINSON^S DISEASE
     Dosage: AT BEDTIME
     Route: 048
     Dates: start: 201703
  12. DUODOPA [Suspect]
     Active Substance: CARBIDOPA\LEVODOPA
     Route: 050
     Dates: start: 20170329
  13. CONCOR COR [Concomitant]
     Active Substance: BISOPROLOL FUMARATE
     Indication: CARDIAC FAILURE CONGESTIVE
     Route: 048
     Dates: start: 2017

REACTIONS (1)
  - Pneumonia [Recovered/Resolved]

NARRATIVE: CASE EVENT DATE: 20180418
